FAERS Safety Report 6476113-X (Version None)
Quarter: 2009Q4

REPORT INFORMATION
  Report Type: 
  Country: None (occurrence: None)
  Receive Date: 20091204
  Receipt Date: 20091202
  Transmission Date: 20100525
  Serious: Yes (Life-Threatening, Congenital Anomaly)
  Sender: FDA-Public Use
  Company Number: GB-B.I. PHARMACEUTICALS,INC./RIDGEFIELD-2009-BP-12999BP

PATIENT

DRUGS (8)
  1. APTIVUS/RITONAVIR CAPSULES [Suspect]
     Indication: HIV INFECTION
     Dosage: 1000 MG
     Route: 015
     Dates: start: 20060905, end: 20081023
  2. ETRAVIRINE [Suspect]
     Dosage: 1000 MG
     Route: 015
     Dates: start: 20081023
  3. NORVIR [Suspect]
     Indication: HIV INFECTION
     Dosage: 400 MG
     Route: 015
     Dates: start: 20060905, end: 20081023
  4. NORVIR [Suspect]
     Dosage: 200 MG
     Route: 015
     Dates: start: 20081023
  5. DARUNAVIR [Suspect]
     Indication: ANTIVIRAL TREATMENT
     Dosage: 1200 MG
     Route: 015
     Dates: start: 20081023
  6. RALTEGRAVIR [Suspect]
     Indication: HIV INFECTION
     Dosage: 800 MG
     Route: 015
     Dates: start: 20081023
  7. TRUVADA [Suspect]
     Indication: HIV INFECTION
     Route: 015
     Dates: start: 20060905, end: 20081023
  8. INSULIN [Concomitant]
     Indication: GESTATIONAL DIABETES
     Route: 064

REACTIONS (5)
  - ANAL ATRESIA [None]
  - BLADDER AGENESIS [None]
  - CONGENITAL GENITAL MALFORMATION [None]
  - EXOMPHALOS [None]
  - GASTROINTESTINAL MALFORMATION [None]
